FAERS Safety Report 5631897-5 (Version None)
Quarter: 2008Q1

REPORT INFORMATION
  Report Type: 
  Country: None (occurrence: None)
  Receive Date: 20080220
  Receipt Date: 20080214
  Transmission Date: 20080703
  Serious: Yes (Hospitalization)
  Sender: FDA-Public Use
  Company Number: US-AVENTIS-200811507GDDC

PATIENT
  Age: 39 Year
  Sex: Male
  Weight: 106.4 kg

DRUGS (2)
  1. LANTUS [Suspect]
     Route: 058
     Dates: start: 20070405
  2. NOVOLIN R [Suspect]
     Route: 058
     Dates: start: 20070405

REACTIONS (2)
  - BLOOD GLUCOSE INCREASED [None]
  - CHOKING [None]
